FAERS Safety Report 9651052 (Version 3)
Quarter: 2013Q4

REPORT INFORMATION
  Report Type: Report from Study
  Country: TW (occurrence: TW)
  Receive Date: 20131029
  Receipt Date: 20131211
  Transmission Date: 20140711
  Serious: Yes (Hospitalization, Other)
  Sender: FDA-Public Use
  Company Number: PHHO2011TW04911

PATIENT
  Age: 27 Year
  Sex: Male
  Weight: 59.3 kg

DRUGS (3)
  1. SOM230 [Suspect]
     Dosage: 900 UG, QD
     Route: 058
     Dates: start: 20101022, end: 20101022
  2. SOM230 [Suspect]
     Dosage: 900 UG, BID
     Route: 058
     Dates: start: 20101105, end: 20101109
  3. SOM230 [Suspect]
     Dosage: 40 MG, QD
     Route: 030
     Dates: start: 20101123, end: 20101123

REACTIONS (2)
  - Xanthoma [Recovered/Resolved with Sequelae]
  - Chronic hepatitis [Recovered/Resolved with Sequelae]
